FAERS Safety Report 21922993 (Version 1)
Quarter: 2023Q1

REPORT INFORMATION
  Report Type: Spontaneous
  Country: DE (occurrence: DE)
  Receive Date: 20230129
  Receipt Date: 20230129
  Transmission Date: 20230418
  Serious: Yes (Other)
  Sender: FDA-Public Use
  Company Number: None

PATIENT
  Age: 1 Day
  Sex: Female
  Weight: 2.605 kg

DRUGS (3)
  1. LEVOTHYROXINE SODIUM [Concomitant]
     Active Substance: LEVOTHYROXINE SODIUM
     Indication: Hypothyroidism
     Dosage: 100 [+#181;G/D ]
     Route: 064
     Dates: start: 20210414, end: 20220120
  2. ABILIFY [Interacting]
     Active Substance: ARIPIPRAZOLE
     Indication: Bipolar II disorder
     Dosage: 5 [MG/D ]
     Route: 064
     Dates: start: 20210414, end: 20220120
  3. VENLAFAXINE [Interacting]
     Active Substance: VENLAFAXINE HYDROCHLORIDE
     Indication: Bipolar II disorder
     Dosage: 75 [MG/D ]
     Route: 064
     Dates: start: 20210414, end: 20220120

REACTIONS (3)
  - Small for dates baby [Not Recovered/Not Resolved]
  - Foetal exposure during pregnancy [Unknown]
  - Drug interaction [Unknown]

NARRATIVE: CASE EVENT DATE: 20220101
